FAERS Safety Report 9900102 (Version 2)
Quarter: 2014Q1

REPORT INFORMATION
  Report Type: Report from Study
  Country: BW (occurrence: BW)
  Receive Date: 20140214
  Receipt Date: 20140220
  Transmission Date: 20141002
  Serious: Yes (Other)
  Sender: FDA-Public Use
  Company Number: BW-GILEAD-2014-0094292

PATIENT
  Age: 24 Year
  Sex: Female
  Weight: 49 kg

DRUGS (6)
  1. EMTRICITABINE/TENOFOVIR DISOPROXIL FUMARATE [Suspect]
     Indication: HIV INFECTION
     Dosage: 2 DF, QD
     Route: 048
     Dates: start: 20140127, end: 20140127
  2. EMTRICITABINE/TENOFOVIR DISOPROXIL FUMARATE [Suspect]
     Dosage: 1 DF, QD
     Route: 048
     Dates: start: 20140211
  3. EMTRICITABINE/TENOFOVIR DISOPROXIL FUMARATE [Suspect]
     Dosage: 1 DF, QD
     Route: 048
     Dates: start: 20120821, end: 20140127
  4. ALUVIA [Suspect]
     Indication: HIV INFECTION
     Dosage: 8 DF, QD
     Route: 048
     Dates: start: 20140127, end: 20140127
  5. ALUVIA [Suspect]
     Dosage: 1 DF, BID
     Route: 048
     Dates: start: 20120821, end: 20140127
  6. ALUVIA [Suspect]
     Dosage: 1 DF, BID
     Route: 048
     Dates: start: 20140211

REACTIONS (1)
  - Intentional overdose [Recovered/Resolved]
